FAERS Safety Report 9054569 (Version 3)
Quarter: 2013Q2

REPORT INFORMATION
  Report Type: Spontaneous
  Country: US (occurrence: US)
  Receive Date: 20130208
  Receipt Date: 20130508
  Transmission Date: 20140414
  Serious: Yes (Hospitalization)
  Sender: FDA-Public Use
  Company Number: US-ELI_LILLY_AND_COMPANY-US201302000210

PATIENT
  Sex: Female
  Weight: 68.03 kg

DRUGS (11)
  1. ADCIRCA [Suspect]
     Indication: PULMONARY ARTERIAL HYPERTENSION
     Dosage: 40 MG, QD
     Route: 048
     Dates: start: 20110729
  2. DILTIAZEM [Concomitant]
     Dosage: 120 MG, QD
  3. POTASSIUM [Concomitant]
     Dosage: 20 MEQ, QD
  4. SPIRONOLACTONE [Concomitant]
     Dosage: 50 MG, QD
  5. LASIX [Concomitant]
     Dosage: 40 MG, BID
  6. LOSARTAN [Concomitant]
     Dosage: 50 MG, QD
  7. COUMADIN [Concomitant]
  8. LETAIRIS [Concomitant]
     Dosage: 10 MG, QD
  9. IBUPROFEN [Concomitant]
  10. MULTIVITAMIN [Concomitant]
  11. DIGOXIN [Concomitant]
     Dosage: 0.125 MG, QD

REACTIONS (3)
  - Hypoxia [Recovered/Resolved]
  - Cardiac failure [Recovered/Resolved]
  - Drug dose omission [Recovered/Resolved]
